FAERS Safety Report 8607055-9 (Version None)
Quarter: 2012Q3

REPORT INFORMATION
  Report Type: 
  Country: None (occurrence: None)
  Receive Date: 20120821
  Receipt Date: 20120811
  Transmission Date: 20120928
  Serious: Yes (Other)
  Sender: FDA-Public Use
  Company Number: CO-AMGEN-COLSP2011068840

PATIENT
  Age: 66 Year
  Sex: Female

DRUGS (5)
  1. NAPROXEN [Concomitant]
     Indication: INFLAMMATION
     Dosage: UNK MG, AS NEEDED
     Route: 048
     Dates: start: 20040101
  2. PREDNISONE [Concomitant]
     Dosage: 5 MG, QD
     Route: 048
     Dates: start: 20070101
  3. PREDNISONE [Concomitant]
     Dosage: 5 MG, 1X/DAY
     Route: 048
     Dates: start: 20070101
  4. NAPROXEN [Concomitant]
     Indication: PAIN
     Dosage: UNK
     Route: 048
     Dates: start: 20040101
  5. ENBREL [Suspect]
     Indication: RHEUMATOID ARTHRITIS
     Dosage: 50 MG, WEEKLY
     Route: 058
     Dates: start: 20111201

REACTIONS (4)
  - PAIN IN EXTREMITY [None]
  - PRURITUS GENERALISED [None]
  - MOBILITY DECREASED [None]
  - HYPERSENSITIVITY [None]
